FAERS Safety Report 5767530-1 (Version None)
Quarter: 2008Q2

REPORT INFORMATION
  Report Type: 
  Country: None (occurrence: None)
  Receive Date: 20080611
  Receipt Date: 20080611
  Transmission Date: 20081010
  Serious: Yes (Hospitalization)
  Sender: FDA-Public Use
  Company Number: None

PATIENT
  Age: 56 Year
  Sex: Male
  Weight: 106.5 kg

DRUGS (1)
  1. PEG-INTRON [Suspect]
     Indication: HEPATITIS C
     Dosage: 180 MG QWEEK SQ
     Route: 058
     Dates: start: 20080529, end: 20080530

REACTIONS (1)
  - MENTAL STATUS CHANGES [None]
